FAERS Safety Report 14695513 (Version 7)
Quarter: 2018Q2

REPORT INFORMATION
  Report Type: Spontaneous
  Country: SK (occurrence: SK)
  Receive Date: 20180329
  Receipt Date: 20180613
  Transmission Date: 20180711
  Serious: Yes (Life-Threatening, Other)
  Sender: FDA-Public Use
  Company Number: SK-PFIZER INC-2018128853

PATIENT
  Age: 71 Year
  Sex: Male

DRUGS (3)
  1. CYTARABINE. [Suspect]
     Active Substance: CYTARABINE
     Indication: ACUTE MYELOID LEUKAEMIA
     Dosage: 5 G TOTALLY IN THREE SEPARATE DOSES (1G - 2G - 2G) THREE DAYS IN A ROW
     Route: 042
  2. CYTARABINE. [Suspect]
     Active Substance: CYTARABINE
     Dosage: 100 MG, 6 DAYS CONTINOUSLY
     Route: 042
  3. DAUNORUBICIN HCL [Suspect]
     Active Substance: DAUNORUBICIN HYDROCHLORIDE
     Indication: ACUTE MYELOID LEUKAEMIA
     Dosage: 40 MG, FOR 3 DAYS
     Route: 042

REACTIONS (6)
  - Escherichia sepsis [Unknown]
  - Bronchopulmonary aspergillosis [Unknown]
  - Staphylococcal sepsis [Unknown]
  - Hyperleukocytosis [Recovered/Resolved]
  - Cardiovascular disorder [Unknown]
  - Pancytopenia [Recovered/Resolved]
